FAERS Safety Report 20029027 (Version 2)
Quarter: 2022Q4

REPORT INFORMATION
  Report Type: Report from Study
  Country: FR (occurrence: FR)
  Receive Date: 20211103
  Receipt Date: 20221209
  Transmission Date: 20230113
  Serious: Yes (Death)
  Sender: FDA-Public Use
  Company Number: FR-BAXTER-2021BAX034114

PATIENT
  Age: 61 Year
  Sex: Female

DRUGS (3)
  1. DOXORUBICIN HYDROCHLORIDE [Suspect]
     Active Substance: DOXORUBICIN HYDROCHLORIDE
     Indication: Plasma cell myeloma
     Dosage: 14.8 MG/DOSE 4 DOSE(S)/WEEK 1 WEEK(S)/CYCLE, TREATMENT LINE 4, DURATION 0.3 MONTHS
     Route: 065
     Dates: end: 20200515
  2. BORTEZOMIB [Suspect]
     Active Substance: BORTEZOMIB
     Indication: Plasma cell myeloma
     Dosage: 2.2 MG/DOSE 2 DOSE(S)/WEEK 2 WEEK(S)/CYCLE, TREATMENT LINE 4, DURATION 0.3 MONTHS
     Route: 065
     Dates: end: 20200515
  3. DEXAMETHASONE [Suspect]
     Active Substance: DEXAMETHASONE
     Indication: Plasma cell myeloma
     Dosage: 40 MG/DOSE 4 DOSE(S)/WEEK 1 WEEK(S)/CYCLE, TREATMENT LINE 4, DURATION 0.3 MONTHS
     Route: 065
     Dates: end: 20200515

REACTIONS (1)
  - Disease progression [Fatal]
